FAERS Safety Report 8287386-5 (Version None)
Quarter: 2012Q2

REPORT INFORMATION
  Report Type: 
  Country: None (occurrence: None)
  Receive Date: 20120416
  Receipt Date: 20120405
  Transmission Date: 20120825
  Serious: Yes (Hospitalization, Other)
  Sender: FDA-Public Use
  Company Number: CA-PFIZER INC-2011289835

PATIENT
  Age: 78 Year
  Sex: Male
  Weight: 92 kg

DRUGS (10)
  1. LIPITOR [Concomitant]
     Dosage: 10 MG, UNK
  2. NASONEX [Concomitant]
  3. BENADRYL [Concomitant]
  4. GLUCOPHAGE [Concomitant]
     Dosage: 1 G, 1X/DAY
  5. ANDROGEL [Concomitant]
     Dosage: 1 PERCENT, UNK
  6. PANTOPRAZOLE SODIUM [Suspect]
     Indication: GASTROOESOPHAGEAL REFLUX DISEASE
     Dosage: 40 MG, 1X/DAY
     Route: 048
     Dates: start: 20050401, end: 20110523
  7. NORVASC [Concomitant]
     Dosage: 5 MG, UNK
  8. ATIVAN [Concomitant]
     Dosage: 20 MG, HS
  9. ALDACTONE [Concomitant]
     Dosage: 50 MG, 1 IN 1 DAY
  10. DESLORATADINE [Concomitant]
     Dosage: 1 DOSAGE FORMS,IN THE MORNING

REACTIONS (5)
  - CONVULSION [None]
  - BLOOD CALCIUM DECREASED [None]
  - BLOOD MAGNESIUM DECREASED [None]
  - BLOOD POTASSIUM DECREASED [None]
  - LOSS OF CONSCIOUSNESS [None]
